FAERS Safety Report 16925581 (Version 2)
Quarter: 2020Q2

REPORT INFORMATION
  Report Type: Report from Study
  Country: NL (occurrence: NL)
  Receive Date: 20191016
  Receipt Date: 20200414
  Transmission Date: 20200713
  Serious: Yes (Life-Threatening, Hospitalization, Other)
  Sender: FDA-Public Use
  Company Number: NL-AMGEN-NLDSL2019167490

PATIENT
  Age: 54 Year
  Sex: Male

DRUGS (2)
  1. CALCIUM CARBONATE;COLECALCIFEROL [Concomitant]
     Active Substance: CALCIUM CARBONATE\CHOLECALCIFEROL
     Dosage: 1.25 GRAM/800IE, QD
  2. XGEVA [Suspect]
     Active Substance: DENOSUMAB
     Indication: PROPHYLAXIS
     Dosage: 120 MILLIGRAM (70MG/ML FLACON 1,7ML), Q4WK
     Route: 065

REACTIONS (4)
  - Terminal state [Unknown]
  - Pyrexia [Unknown]
  - Dyspnoea [Unknown]
  - Urinary retention [Unknown]
